FAERS Safety Report 4968443-5 (Version None)
Quarter: 2006Q2

REPORT INFORMATION
  Report Type: 
  Country: None (occurrence: None)
  Receive Date: 20060410
  Receipt Date: 20051020
  Transmission Date: 20061013
  Serious: Yes (Hospitalization, Other)
  Sender: FDA-Public Use
  Company Number: US-MERCK-0510USA08474

PATIENT
  Age: 41 Year
  Sex: Female
  Weight: 67 kg

DRUGS (3)
  1. VIOXX [Suspect]
     Indication: MIGRAINE
     Route: 048
     Dates: start: 20020101, end: 20031029
  2. FAMOTIDINE [Concomitant]
     Route: 065
  3. ATENOLOL [Concomitant]
     Route: 065

REACTIONS (6)
  - HYPERLIPIDAEMIA [None]
  - HYPERTENSION [None]
  - MYOCARDIAL INFARCTION [None]
  - MYOCARDIAL ISCHAEMIA [None]
  - UTERINE DISORDER [None]
  - VENTRICULAR TACHYCARDIA [None]
